FAERS Safety Report 20473642 (Version 1)
Quarter: 2022Q1

REPORT INFORMATION
  Report Type: Report from Study
  Country: PK (occurrence: PK)
  Receive Date: 20220215
  Receipt Date: 20220215
  Transmission Date: 20220423
  Serious: Yes (Death)
  Sender: FDA-Public Use
  Company Number: PK-NOVARTISPH-NVSC2022PK033860

PATIENT
  Age: 52 Year
  Sex: Male
  Weight: 69 kg

DRUGS (1)
  1. TASIGNA [Suspect]
     Active Substance: NILOTINIB
     Indication: Chronic myeloid leukaemia
     Dosage: 200 MG (2+0+2)
     Route: 065
     Dates: start: 20210706

REACTIONS (4)
  - Transformation to acute myeloid leukaemia [Fatal]
  - Cardio-respiratory arrest [Fatal]
  - Platelet count decreased [Unknown]
  - Haemoglobin decreased [Unknown]

NARRATIVE: CASE EVENT DATE: 20220207
